FAERS Safety Report 5373292-2 (Version None)
Quarter: 2007Q2

REPORT INFORMATION
  Report Type: 
  Country: None (occurrence: None)
  Receive Date: 20070626
  Receipt Date: 20070626
  Transmission Date: 20071010
  Serious: Yes (Hospitalization)
  Sender: FDA-Public Use
  Company Number: None

PATIENT
  Sex: Female
  Weight: 54 kg

DRUGS (2)
  1. BEVACIZUMAB [Suspect]
     Indication: LUNG NEOPLASM MALIGNANT
     Dosage: 15 MG/KG EVERY 21 DAYS IV DRIP
     Route: 041
     Dates: start: 20070207, end: 20070620
  2. BORTEZOMIB [Suspect]
     Indication: LUNG NEOPLASM MALIGNANT
     Dosage: 1.3 MG/M2 DAY 1 AND DAY 8 IV DRIP
     Route: 041
     Dates: start: 20070207, end: 20070530

REACTIONS (7)
  - ASPARTATE AMINOTRANSFERASE INCREASED [None]
  - BACK PAIN [None]
  - BILIRUBIN CONJUGATED INCREASED [None]
  - BLOOD ALKALINE PHOSPHATASE INCREASED [None]
  - BLOOD BILIRUBIN INCREASED [None]
  - BLOOD SODIUM DECREASED [None]
  - CHEST PAIN [None]
